FAERS Safety Report 7959622-3 (Version None)
Quarter: 2011Q4

REPORT INFORMATION
  Report Type: 
  Country: None (occurrence: None)
  Receive Date: 20111201
  Receipt Date: 20111114
  Transmission Date: 20120403
  Serious: Yes (Hospitalization, Other)
  Sender: FDA-Public Use
  Company Number: 2011P1009501

PATIENT
  Age: 48 Year
  Sex: Female

DRUGS (13)
  1. COREG [Concomitant]
  2. SENNA PLUS [Concomitant]
  3. COLACE [Concomitant]
  4. LAMOTRIGINE [Suspect]
     Indication: DEPRESSION
     Dosage: 100 MG;QD;PO
     Route: 048
     Dates: start: 20110826, end: 20110830
  5. LAMOTRIGINE [Suspect]
     Indication: AFFECTIVE DISORDER
     Dosage: 100 MG;QD;PO
     Route: 048
     Dates: start: 20110826, end: 20110830
  6. SYNTHROID [Concomitant]
  7. CELEXA [Concomitant]
  8. RAMIPRIL [Concomitant]
  9. COUMADIN [Concomitant]
  10. LAMOTRIGINE [Suspect]
     Indication: AFFECTIVE DISORDER
     Dosage: 50 MG 100 MG;QD
     Dates: start: 20110823, end: 20110825
  11. LAMOTRIGINE [Suspect]
     Indication: DEPRESSION
     Dosage: 50 MG 100 MG;QD
     Dates: start: 20110823, end: 20110825
  12. LAMOTRIGINE [Suspect]
     Indication: AFFECTIVE DISORDER
     Dosage: 50 MG 100 MG;QD
     Dates: end: 20110822
  13. LAMOTRIGINE [Suspect]
     Indication: DEPRESSION
     Dosage: 50 MG 100 MG;QD
     Dates: end: 20110822

REACTIONS (2)
  - NERVE INJURY [None]
  - DRUG RASH WITH EOSINOPHILIA AND SYSTEMIC SYMPTOMS [None]
